FAERS Safety Report 8330147-9 (Version None)
Quarter: 2012Q2

REPORT INFORMATION
  Report Type: 
  Country: None (occurrence: None)
  Receive Date: 20120502
  Receipt Date: 20100131
  Transmission Date: 20120825
  Serious: No
  Sender: FDA-Public Use
  Company Number: US-TEVA-2010000598

PATIENT
  Sex: Female
  Weight: 66.284 kg

DRUGS (3)
  1. PETADOLEX [Concomitant]
     Dosage: 150 MILLIGRAM;
     Route: 048
     Dates: start: 20100129
  2. PETADOLEX [Concomitant]
     Route: 048
     Dates: start: 20091128, end: 20100129
  3. NUVIGIL [Suspect]
     Indication: SLEEP DISORDER
     Dosage: 150 MILLIGRAM;
     Route: 048
     Dates: start: 20100129

REACTIONS (6)
  - PERIPHERAL COLDNESS [None]
  - CRYING [None]
  - HYPOAESTHESIA [None]
  - PALPITATIONS [None]
  - ANXIETY [None]
  - BRUXISM [None]
